FAERS Safety Report 4511392-7 (Version None)
Quarter: 2004Q4

REPORT INFORMATION
  Report Type: 
  Country: None (occurrence: None)
  Receive Date: 20041123
  Receipt Date: 20041123
  Transmission Date: 20050328
  Serious: Yes (Life-Threatening)
  Sender: FDA-Public Use
  Company Number: None

PATIENT
  Age: 48 Year
  Sex: Female

DRUGS (2)
  1. LINEZOLID [Suspect]
     Indication: CATHETER RELATED INFECTION
     Dosage: 600MG Q12H  ORAL
     Route: 048
  2. FLUOXETINE [Suspect]
     Indication: DEPRESSION
     Dosage: 60MG  DAILY ORAL
     Route: 048

REACTIONS (4)
  - COMA [None]
  - FACE OEDEMA [None]
  - GRAND MAL CONVULSION [None]
  - THERAPY NON-RESPONDER [None]
